FAERS Safety Report 20511468 (Version 1)
Quarter: 2022Q1

REPORT INFORMATION
  Report Type: Spontaneous
  Country: US (occurrence: US)
  Receive Date: 20220224
  Receipt Date: 20220224
  Transmission Date: 20220423
  Serious: Yes (Other)
  Sender: FDA-Public Use
  Company Number: US-LANTHEUS-LMI-2021-00985

PATIENT
  Age: 66 Year
  Sex: Female

DRUGS (1)
  1. DEFINITY [Suspect]
     Active Substance: PERFLUTREN
     Indication: Product used for unknown indication
     Dosage: UNK
     Dates: start: 20210811, end: 20210811

REACTIONS (5)
  - Pulseless electrical activity [Unknown]
  - Paraesthesia [Unknown]
  - Dyspnoea [Unknown]
  - Flushing [Unknown]
  - Lip swelling [Unknown]

NARRATIVE: CASE EVENT DATE: 20210811
